FAERS Safety Report 5280861-7 (Version None)
Quarter: 2007Q1

REPORT INFORMATION
  Report Type: 
  Country: None (occurrence: None)
  Receive Date: 20070329
  Receipt Date: 20070327
  Transmission Date: 20070707
  Serious: Yes (Hospitalization)
  Sender: FDA-Public Use
  Company Number: US-BAXTER-2007BH000062

PATIENT
  Age: 58 Year
  Sex: Female
  Weight: 76 kg

DRUGS (2)
  1. IMMUNE GLOBULIN INTRAVENOUS (HUMAN) [Suspect]
     Indication: IMMUNODEFICIENCY COMMON VARIABLE
     Route: 042
     Dates: start: 20061205, end: 20070102
  2. IMMUNE GLOBULIN INTRAVENOUS (HUMAN) [Suspect]
     Route: 042
     Dates: start: 20061205, end: 20070102

REACTIONS (4)
  - CHEST DISCOMFORT [None]
  - DYSPHAGIA [None]
  - NAUSEA [None]
  - PRURITUS [None]
